FAERS Safety Report 5300036-2 (Version None)
Quarter: 2007Q2

REPORT INFORMATION
  Report Type: 
  Country: None (occurrence: None)
  Receive Date: 20070417
  Receipt Date: 20070308
  Transmission Date: 20071010
  Serious: Yes (Hospitalization, Other)
  Sender: FDA-Public Use
  Company Number: US-PFIZER INC-2006099898

PATIENT
  Sex: Female
  Weight: 95.3 kg

DRUGS (3)
  1. CELEBREX [Suspect]
     Indication: OSTEOARTHRITIS
  2. BEXTRA [Suspect]
     Indication: OSTEOARTHRITIS
  3. VIOXX [Suspect]
     Indication: DRUG USE FOR UNKNOWN INDICATION
     Dosage: TEXT:UNKNOWN-FREQ:UNKNOWN
     Route: 048
     Dates: start: 20010901, end: 20040201

REACTIONS (1)
  - CEREBROVASCULAR ACCIDENT [None]
